FAERS Safety Report 16451497 (Version 2)
Quarter: 2019Q2

REPORT INFORMATION
  Report Type: Spontaneous
  Country: JP (occurrence: JP)
  Receive Date: 20190619
  Receipt Date: 20190626
  Transmission Date: 20190711
  Serious: Yes (Other)
  Sender: FDA-Public Use
  Company Number: JP-BEH-2019103144

PATIENT
  Sex: Male

DRUGS (6)
  1. FACTOR X (STUART PROWER FACTOR) [Suspect]
     Active Substance: COAGULATION FACTOR X HUMAN
     Dosage: 105 MICROGRAM/KILOGRAM, TIW
     Route: 065
  2. FACTOR VIIA, RECOMBINANT [Suspect]
     Active Substance: COAGULATION FACTOR VIIA RECOMBINANT HUMAN
     Route: 065
  3. FACTOR VIIA, RECOMBINANT [Suspect]
     Active Substance: COAGULATION FACTOR VIIA RECOMBINANT HUMAN
     Dosage: 120 MICROGRAM/KILOGRAM, 3-5 TIMES A WEEK
     Route: 065
  4. HUMAN FACTOR VIII (NC) [Suspect]
     Active Substance: ANTIHEMOPHILIC FACTOR HUMAN
     Indication: IMMUNE TOLERANCE INDUCTION
     Dosage: 100 INTERNATIONAL UNIT/KILOGRAM, QD
     Route: 065
  5. FACTOR VIIA [Suspect]
     Active Substance: COAGULATION FACTOR VIIA HUMAN
     Dosage: 105 MICROGRAM/KILOGRAM, TIW
     Route: 065
  6. HUMAN FACTOR VIII (NC) [Suspect]
     Active Substance: ANTIHEMOPHILIC FACTOR HUMAN
     Indication: FACTOR VIII DEFICIENCY
     Route: 065

REACTIONS (4)
  - Factor VIII inhibition [Unknown]
  - Drug ineffective for unapproved indication [Unknown]
  - No adverse event [Unknown]
  - Product use in unapproved indication [Unknown]
